FAERS Safety Report 8966071 (Version 2)
Quarter: 2013Q3

REPORT INFORMATION
  Report Type: Spontaneous
  Country: US (occurrence: US)
  Receive Date: 20121214
  Receipt Date: 20130828
  Transmission Date: 20140515
  Serious: Yes (Other)
  Sender: FDA-Public Use
  Company Number: CHPA2012US024856

PATIENT
  Age: 53 Year
  Sex: Female

DRUGS (2)
  1. MAALOX ANTACID TABLETS - UNKNOWN [Suspect]
     Indication: GASTROOESOPHAGEAL REFLUX DISEASE
     Dosage: 3 DF, PRN 3 OR 4 TIMES A WEEK
     Route: 048
     Dates: start: 200409
  2. MAALOX ANTACID/ANTIGAS MAX LIQ UNKNOWN [Suspect]
     Indication: GASTROOESOPHAGEAL REFLUX DISEASE
     Dosage: 3 TSP, 3 OR 4 TIMES A WEEK
     Route: 048
     Dates: start: 200409

REACTIONS (4)
  - Gastritis [Recovered/Resolved]
  - Abdominal discomfort [Not Recovered/Not Resolved]
  - Therapeutic response unexpected [Unknown]
  - Off label use [Unknown]
